FAERS Safety Report 6936329-2 (Version None)
Quarter: 2010Q3

REPORT INFORMATION
  Report Type: 
  Country: None (occurrence: None)
  Receive Date: 20100823
  Receipt Date: 20100811
  Transmission Date: 20110219
  Serious: Yes (Hospitalization, Other)
  Sender: FDA-Public Use
  Company Number: US-PFIZER INC-2010080971

PATIENT
  Sex: Female
  Weight: 41.27 kg

DRUGS (8)
  1. IBANDRONATE SODIUM [Suspect]
     Indication: OSTEOPOROSIS
     Dosage: UNK
     Route: 048
  2. TYLENOL-500 [Suspect]
  3. VITAMIN D [Suspect]
  4. CALCIUM [Suspect]
  5. TETANUS VACCINE [Suspect]
  6. FOSAMAX [Suspect]
     Indication: OSTEOPOROSIS
     Dosage: UNK
     Route: 048
  7. INDERAL [Concomitant]
     Indication: CARDIAC DISORDER
     Dosage: 160 MG, 1X/DAY
     Route: 048
  8. XANAX [Concomitant]
     Indication: ANXIETY
     Dosage: 0.5 MG, 1X/DAY
     Route: 048

REACTIONS (8)
  - ABDOMINAL PAIN UPPER [None]
  - ATRIAL FIBRILLATION [None]
  - ATRIAL FLUTTER [None]
  - CARDIAC FLUTTER [None]
  - GASTRIC DISORDER [None]
  - NASAL OEDEMA [None]
  - PHARYNGEAL OEDEMA [None]
  - VOMITING [None]
